FAERS Safety Report 8472229-7 (Version None)
Quarter: 2012Q2

REPORT INFORMATION
  Report Type: 
  Country: None (occurrence: None)
  Receive Date: 20120627
  Receipt Date: 20120625
  Transmission Date: 20120825
  Serious: Yes (Death)
  Sender: FDA-Public Use
  Company Number: US-BAYER-2012-044337

PATIENT
  Age: 66 Year
  Sex: Male
  Weight: 123.81 kg

DRUGS (15)
  1. NIFEDIPINE [Concomitant]
     Dosage: 60 MG, QD
     Route: 048
     Dates: start: 20111209
  2. BETASERON [Suspect]
     Indication: MULTIPLE SCLEROSIS
     Dosage: 0.25 MG QOD
     Route: 058
     Dates: start: 20040513, end: 20120504
  3. COUMADIN [Concomitant]
     Dosage: 5 MG, QD
  4. LASIX [Concomitant]
     Dosage: 60 MG, TID
     Route: 048
  5. NEURONTIN [Concomitant]
     Dosage: 100 MG, FIVE TIMES DAILY
     Route: 048
     Dates: start: 20120116
  6. AMANTADINE HCL [Concomitant]
     Dosage: 100 MG, BID
     Route: 048
     Dates: start: 20111228
  7. BACLOFEN [Concomitant]
     Dosage: 20 MG, TID
     Route: 048
     Dates: start: 20111227
  8. SIMVASTATIN [Concomitant]
     Dosage: 40 MG, QD
     Route: 048
  9. ALBUTEROL SULFATE [Concomitant]
     Dosage: .21 MG/ML, PRN
  10. CARVEDILOL [Concomitant]
     Dosage: 25 MG, BID
     Route: 048
  11. POTASSIUM CHLORIDE [Concomitant]
     Dosage: 10 MEQ, QD
     Route: 048
  12. NORTRIPTYLINE HCL [Concomitant]
     Dosage: 100 MG, PRN
  13. ACCUPRIL [Concomitant]
     Dosage: 10 MG, BID
     Route: 048
  14. ALBUTEROL [Concomitant]
     Dosage: 90 MCG/L, PRN
  15. DIGOXIN [Concomitant]
     Dosage: 250 MCG/L, QD
     Route: 048

REACTIONS (1)
  - MULTIPLE SCLEROSIS [None]
